FAERS Safety Report 7745853-4 (Version None)
Quarter: 2011Q3

REPORT INFORMATION
  Report Type: 
  Country: None (occurrence: None)
  Receive Date: 20110908
  Receipt Date: 20110824
  Transmission Date: 20111222
  Serious: Yes (Disabling)
  Sender: FDA-Public Use
  Company Number: 1011324

PATIENT
  Age: 33 Year
  Sex: Female

DRUGS (2)
  1. EPIRUBICIN HYDROCHLORIDE [Suspect]
     Indication: BREAST CANCER FEMALE
  2. CYCLOPHOSPHAMIDE [Concomitant]

REACTIONS (10)
  - FATIGUE [None]
  - ACTIVITIES OF DAILY LIVING IMPAIRED [None]
  - SENSORY DISTURBANCE [None]
  - PAIN OF SKIN [None]
  - NECK PAIN [None]
  - NAUSEA [None]
  - MYALGIA [None]
  - ARTHRALGIA [None]
  - PARAPLEGIA [None]
  - ASTHENIA [None]
